FAERS Safety Report 6780907-0 (Version None)
Quarter: 2010Q2

REPORT INFORMATION
  Report Type: 
  Country: None (occurrence: None)
  Receive Date: 20100621
  Receipt Date: 20100610
  Transmission Date: 20101027
  Serious: Yes (Hospitalization)
  Sender: FDA-Public Use
  Company Number: DE-ELI_LILLY_AND_COMPANY-DE201006003857

PATIENT
  Sex: Male

DRUGS (4)
  1. BYETTA [Suspect]
     Indication: DIABETES MELLITUS
     Dosage: 10 UG, 2/D
     Route: 058
  2. METFORMIN HCL [Concomitant]
     Dosage: UNK, UNKNOWN
  3. DIURETICS [Concomitant]
     Dosage: UNK, UNK
  4. ANTIHYPERTENSIVES [Concomitant]

REACTIONS (4)
  - ALOPECIA [None]
  - EARLY SATIETY [None]
  - HOSPITALISATION [None]
  - NAUSEA [None]
